FAERS Safety Report 17727817 (Version 1)
Quarter: 2020Q2

REPORT INFORMATION
  Report Type: Spontaneous
  Country: CN (occurrence: CN)
  Receive Date: 20200430
  Receipt Date: 20200430
  Transmission Date: 20200714
  Serious: Yes (Hospitalization)
  Sender: FDA-Public Use
  Company Number: CN-ASTRAZENECA-2020SE57301

PATIENT
  Age: 64 Year
  Sex: Female
  Weight: 41 kg

DRUGS (1)
  1. IRESSA [Suspect]
     Active Substance: GEFITINIB
     Indication: NEOPLASM
     Route: 048
     Dates: start: 20200218, end: 20200422

REACTIONS (3)
  - Interstitial lung disease [Recovering/Resolving]
  - Viral infection [Unknown]
  - Fungal infection [Unknown]

NARRATIVE: CASE EVENT DATE: 20200419
